FAERS Safety Report 7995969-2 (Version None)
Quarter: 2011Q4

REPORT INFORMATION
  Report Type: 
  Country: None (occurrence: None)
  Receive Date: 20111220
  Receipt Date: 20111215
  Transmission Date: 20120403
  Serious: Yes (Other)
  Sender: FDA-Public Use
  Company Number: US-ROCHE-791645

PATIENT
  Sex: Female
  Weight: 56.75 kg

DRUGS (4)
  1. MINOCYCLINE HCL [Concomitant]
  2. ACCUTANE [Suspect]
     Indication: ACNE CYSTIC
     Route: 065
     Dates: start: 19970101, end: 19990801
  3. ACCUTANE [Suspect]
     Dates: start: 19970901, end: 19980301
  4. ACCUTANE [Suspect]
     Dates: start: 19980401, end: 19981001

REACTIONS (10)
  - DRY EYE [None]
  - INFLAMMATORY BOWEL DISEASE [None]
  - ANXIETY [None]
  - DEPRESSION [None]
  - BRONCHITIS [None]
  - HEPATIC ENZYME INCREASED [None]
  - COLITIS ULCERATIVE [None]
  - EMOTIONAL DISTRESS [None]
  - BLOOD TRIGLYCERIDES INCREASED [None]
  - MIGRAINE [None]
